FAERS Safety Report 18156095 (Version 2)
Quarter: 2020Q4

REPORT INFORMATION
  Report Type: Spontaneous
  Country: US (occurrence: US)
  Receive Date: 20200817
  Receipt Date: 20201112
  Transmission Date: 20210113
  Serious: No
  Sender: FDA-Public Use
  Company Number: US-SA-2020SA214652

PATIENT

DRUGS (2)
  1. DUPIXENT [Suspect]
     Active Substance: DUPILUMAB
     Indication: PRODUCT USED FOR UNKNOWN INDICATION
     Dosage: 600 MG, 1X
     Route: 058
     Dates: start: 202008, end: 202008
  2. DUPIXENT [Suspect]
     Active Substance: DUPILUMAB
     Dosage: UNK, QOW
     Route: 058
     Dates: start: 2020

REACTIONS (3)
  - Acne [Unknown]
  - Rash [Unknown]
  - Pruritus [Unknown]

NARRATIVE: CASE EVENT DATE: 2020
